FAERS Safety Report 5511357-2 (Version None)
Quarter: 2007Q4

REPORT INFORMATION
  Report Type: 
  Country: None (occurrence: None)
  Receive Date: 20071109
  Receipt Date: 20070914
  Transmission Date: 20080405
  Serious: No
  Sender: FDA-Public Use
  Company Number: A0682109A

PATIENT
  Age: 10 Year
  Sex: Female

DRUGS (3)
  1. ALTABAX [Suspect]
     Indication: STAPHYLOCOCCAL INFECTION
     Route: 061
     Dates: start: 20070907, end: 20070909
  2. SULFATRIM [Concomitant]
  3. VITAMIN CAP [Concomitant]

REACTIONS (2)
  - BURNING SENSATION [None]
  - PRURITUS [None]
